FAERS Safety Report 7970530-4 (Version None)
Quarter: 2011Q4

REPORT INFORMATION
  Report Type: 
  Country: None (occurrence: None)
  Receive Date: 20111212
  Receipt Date: 20111207
  Transmission Date: 20120403
  Serious: No
  Sender: FDA-Public Use
  Company Number: US-BAYER-2011-117870

PATIENT
  Sex: Female

DRUGS (1)
  1. YAZ [Suspect]
     Dosage: 1 DF, QD
     Route: 048

REACTIONS (3)
  - NO ADVERSE EVENT [None]
  - HYPOMENORRHOEA [None]
  - AMENORRHOEA [None]
